FAERS Safety Report 5446166-6 (Version None)
Quarter: 2007Q3

REPORT INFORMATION
  Report Type: 
  Country: None (occurrence: None)
  Receive Date: 20070731
  Receipt Date: 20060724
  Transmission Date: 20080115
  Serious: Yes (Other)
  Sender: FDA-Public Use
  Company Number: US-2006-021600

PATIENT

DRUGS (1)
  1. MAGNEVIST [Suspect]
     Dosage: INTRAVENOUS
     Route: 042

REACTIONS (1)
  - LARYNGOSPASM [None]
